FAERS Safety Report 6829686-9 (Version None)
Quarter: 2010Q3

REPORT INFORMATION
  Report Type: 
  Country: None (occurrence: None)
  Receive Date: 20100709
  Receipt Date: 20070615
  Transmission Date: 20110219
  Serious: Yes (Other)
  Sender: FDA-Public Use
  Company Number: US-PFIZER INC-2007019697

PATIENT
  Sex: Female
  Weight: 134.3 kg

DRUGS (3)
  1. CHANTIX [Suspect]
     Indication: SMOKING CESSATION THERAPY
     Route: 048
     Dates: start: 20061204, end: 20070201
  2. CYMBALTA [Concomitant]
  3. NEXIUM [Concomitant]

REACTIONS (4)
  - DIABETES MELLITUS [None]
  - GENERALISED OEDEMA [None]
  - OEDEMA PERIPHERAL [None]
  - WEIGHT INCREASED [None]
